FAERS Safety Report 7957268-4 (Version None)
Quarter: 2011Q4

REPORT INFORMATION
  Report Type: 
  Country: None (occurrence: None)
  Receive Date: 20111205
  Receipt Date: 20111121
  Transmission Date: 20120403
  Serious: Yes (Hospitalization)
  Sender: FDA-Public Use
  Company Number: IT-CELGENEUS-083-21880-11103375

PATIENT
  Sex: Female

DRUGS (4)
  1. REVLIMID [Suspect]
     Route: 048
     Dates: start: 20080625, end: 20100113
  2. COUMADIN [Concomitant]
     Route: 048
  3. LASIX [Concomitant]
     Route: 048
  4. ALENDRONATE SODIUM [Concomitant]
     Route: 048

REACTIONS (1)
  - BREAST CANCER [None]
